FAERS Safety Report 10640366 (Version 1)
Quarter: 2014Q4

REPORT INFORMATION
  Report Type: Spontaneous
  Country: IN (occurrence: IN)
  Receive Date: 20141209
  Receipt Date: 20141209
  Transmission Date: 20150529
  Serious: Yes (Other)
  Sender: FDA-Public Use
  Company Number: IN-MERCK-1412IND001340

PATIENT
  Age: 65 Year
  Sex: Male

DRUGS (2)
  1. ZIENAM [Suspect]
     Active Substance: CILASTATIN SODIUM\IMIPENEM
     Dosage: UNK
  2. INVANZ [Suspect]
     Active Substance: ERTAPENEM SODIUM
     Dosage: UNK

REACTIONS (4)
  - Bronchopneumonia [Unknown]
  - Prostate cancer metastatic [Unknown]
  - Sepsis [Unknown]
  - Pancytopenia [Unknown]
